FAERS Safety Report 24090424 (Version 1)
Quarter: 2024Q3

REPORT INFORMATION
  Report Type: Spontaneous
  Country: RO (occurrence: RO)
  Receive Date: 20240715
  Receipt Date: 20240715
  Transmission Date: 20241016
  Serious: No
  Sender: PIERRE FABRE MEDICAMENT
  Company Number: RO-PFM-2021-08318

PATIENT
  Sex: Female

DRUGS (4)
  1. PROPRANOLOL [Suspect]
     Active Substance: PROPRANOLOL HYDROCHLORIDE
     Indication: Haemangioma
     Dosage: 3 MG/KG, UNK
     Route: 048
  2. PROPRANOLOL [Suspect]
     Active Substance: PROPRANOLOL HYDROCHLORIDE
     Indication: Off label use
  3. SIROLIMUS [Suspect]
     Active Substance: SIROLIMUS
     Indication: Haemangioma
     Dosage: 0.4 MG/M2, BID (2/DAY)
     Route: 048
  4. SIROLIMUS [Suspect]
     Active Substance: SIROLIMUS
     Dosage: RANGED BETWEEN 0.35 AND 0.8 MG/M2
     Route: 048

REACTIONS (5)
  - Hypertriglyceridaemia [Unknown]
  - Dyslipidaemia [Unknown]
  - High density lipoprotein decreased [Unknown]
  - Product use in unapproved indication [Unknown]
  - Off label use [Unknown]
